FAERS Safety Report 5829574-0 (Version None)
Quarter: 2008Q3

REPORT INFORMATION
  Report Type: 
  Country: None (occurrence: None)
  Receive Date: 20080731
  Receipt Date: 20080721
  Transmission Date: 20090109
  Serious: Yes (Hospitalization, Other)
  Sender: FDA-Public Use
  Company Number: US-PFIZER INC-2008046237

PATIENT
  Sex: Female
  Weight: 45.4 kg

DRUGS (10)
  1. DILANTIN [Suspect]
     Indication: CONVULSION
     Route: 048
     Dates: start: 20070508, end: 20080515
  2. LORTAB [Concomitant]
  3. CYMBALTA [Concomitant]
  4. SPIRIVA [Concomitant]
  5. REQUIP [Concomitant]
  6. ADVIL [Concomitant]
  7. LIPITOR [Concomitant]
  8. LYRICA [Concomitant]
  9. NEXIUM [Concomitant]
  10. OMEPRAZOLE [Concomitant]

REACTIONS (3)
  - ANTICONVULSANT DRUG LEVEL INCREASED [None]
  - BLINDNESS TRANSIENT [None]
  - MUTISM [None]
